FAERS Safety Report 7633156-8 (Version None)
Quarter: 2011Q3

REPORT INFORMATION
  Report Type: 
  Country: None (occurrence: None)
  Receive Date: 20110725
  Receipt Date: 20110713
  Transmission Date: 20111222
  Serious: Yes (Other)
  Sender: FDA-Public Use
  Company Number: US-ROCHE-754274

PATIENT
  Sex: Male
  Weight: 61.2 kg

DRUGS (7)
  1. ACCUTANE [Suspect]
     Route: 065
     Dates: end: 20030401
  2. AMNESTEEM [Suspect]
     Indication: ACNE
     Route: 065
     Dates: start: 20030421, end: 20060518
  3. LUVOX [Concomitant]
  4. SIMVASTATIN [Concomitant]
  5. ACCUTANE [Suspect]
     Route: 065
     Dates: start: 20030421, end: 20060518
  6. SOTRET [Suspect]
     Indication: ACNE
     Route: 065
     Dates: start: 20030421, end: 20060518
  7. ATENOLOL [Concomitant]

REACTIONS (11)
  - CLOSTRIDIUM DIFFICILE COLITIS [None]
  - INFLAMMATORY BOWEL DISEASE [None]
  - DRY MOUTH [None]
  - MUSCULOSKELETAL PAIN [None]
  - COLITIS ULCERATIVE [None]
  - ANXIETY [None]
  - ARTHRALGIA [None]
  - CHAPPED LIPS [None]
  - DERMAL CYST [None]
  - DRY SKIN [None]
  - OBSESSIVE-COMPULSIVE DISORDER [None]
